FAERS Safety Report 6877454-4 (Version None)
Quarter: 2010Q3

REPORT INFORMATION
  Report Type: 
  Country: None (occurrence: None)
  Receive Date: 20100727
  Receipt Date: 20100105
  Transmission Date: 20110219
  Serious: No
  Sender: FDA-Public Use
  Company Number: US-ABBOTT-10P-163-0617671-00

PATIENT
  Age: 36 Year
  Sex: Male
  Weight: 77.18 kg

DRUGS (2)
  1. SYNTHROID [Suspect]
     Indication: THYROIDECTOMY
     Route: 048
     Dates: start: 20010101, end: 20100104
  2. SYNTHROID [Suspect]
     Route: 048
     Dates: start: 20100104

REACTIONS (2)
  - BLOOD THYROID STIMULATING HORMONE INCREASED [None]
  - MUSCLE SPASMS [None]
